FAERS Safety Report 4307617-3 (Version None)
Quarter: 2004Q1

REPORT INFORMATION
  Report Type: 
  Country: None (occurrence: None)
  Receive Date: 20040225
  Receipt Date: 20030606
  Transmission Date: 20041129
  Serious: Yes (Hospitalization)
  Sender: FDA-Public Use
  Company Number: WAES 0306USA01046

PATIENT
  Sex: Female

DRUGS (2)
  1. ZOCOR [Suspect]
     Dosage: 10 MG/DAILY/PO
     Route: 048
  2. INSULIN [Concomitant]

REACTIONS (2)
  - DYSPNOEA [None]
  - MYOPATHY [None]
